FAERS Safety Report 20879559 (Version 1)
Quarter: 2022Q2

REPORT INFORMATION
  Report Type: Spontaneous
  Country: CN (occurrence: CN)
  Receive Date: 20220526
  Receipt Date: 20220526
  Transmission Date: 20220721
  Serious: Yes (Other)
  Sender: FDA-Public Use
  Company Number: CN-PFIZER INC-202200743982

PATIENT
  Age: 64 Year
  Sex: Male
  Weight: 73 kg

DRUGS (5)
  1. SOLU-MEDROL [Suspect]
     Active Substance: METHYLPREDNISOLONE SODIUM SUCCINATE
     Indication: Hormone replacement therapy
     Dosage: 20 MG, 1X/DAY
     Route: 041
     Dates: start: 20220326, end: 20220330
  2. COMPOUND RESERPINE TRIAMTERENE TABLETS [Concomitant]
     Indication: Blood pressure increased
     Dosage: 1 DF, 1X/DAY
     Route: 048
     Dates: start: 20220326, end: 20220331
  3. ESOMEPRAZOLE SODIUM [Concomitant]
     Active Substance: ESOMEPRAZOLE SODIUM
     Indication: Gastrointestinal disorder therapy
     Dosage: 20 MG, 1X/DAY
     Route: 041
     Dates: start: 20220326, end: 20220331
  4. POTASSIUM CHLORIDE [Concomitant]
     Active Substance: POTASSIUM CHLORIDE
     Indication: Mineral supplementation
     Dosage: 1 G, 3X/DAY
     Route: 048
     Dates: start: 20220326, end: 20220331
  5. Lang Di [Concomitant]
     Indication: Mineral supplementation
     Dosage: 0.5 G, 1X/DAY
     Route: 048
     Dates: start: 20220326, end: 20220331

REACTIONS (2)
  - Altered state of consciousness [Recovered/Resolved]
  - Mental disorder [Recovered/Resolved]

NARRATIVE: CASE EVENT DATE: 20220327
